FAERS Safety Report 11141332 (Version 1)
Quarter: 2015Q2

REPORT INFORMATION
  Report Type: Spontaneous
  Country: US (occurrence: US)
  Receive Date: 20150527
  Receipt Date: 20150527
  Transmission Date: 20150821
  Serious: No
  Sender: FDA-Public Use
  Company Number: US-MALLINCKRODT-QSC-2014-0662

PATIENT
  Age: 68 Year
  Sex: Female
  Weight: 64.4 kg

DRUGS (2)
  1. PREDNISONE. [Concomitant]
     Active Substance: PREDNISONE
     Dosage: 1 ML, BIW
     Dates: start: 201408, end: 2014
  2. H.P. ACTHAR [Suspect]
     Active Substance: CORTICOTROPIN
     Indication: SARCOIDOSIS
     Dosage: 1 ML, BIW
     Dates: start: 201408, end: 20140903

REACTIONS (4)
  - Localised oedema [Recovering/Resolving]
  - Bronchospasm [Recovering/Resolving]
  - Local swelling [Recovering/Resolving]
  - Hepatic enzyme abnormal [Unknown]

NARRATIVE: CASE EVENT DATE: 2014
